FAERS Safety Report 10078372 (Version 2)
Quarter: 2015Q2

REPORT INFORMATION
  Report Type: Spontaneous
  Country: US (occurrence: None)
  Receive Date: 20140327
  Receipt Date: 20150520
  Transmission Date: 20150821
  Serious: Yes (Other)
  Sender: FDA-Public Use
  Company Number: ADR-2008-4636

PATIENT
  Sex: Male

DRUGS (3)
  1. MORPHINE [Suspect]
     Active Substance: MORPHINE
  2. BACLOFEN INTRATHECAL [Suspect]
     Active Substance: BACLOFEN
     Indication: PAIN MANAGEMENT
     Route: 037
  3. FENTANYL INTRATHECAL 500 MCG/ML [Suspect]
     Active Substance: FENTANYL

REACTIONS (8)
  - Intestinal obstruction [None]
  - Abdominal adhesions [None]
  - Anxiety [None]
  - Drug effect decreased [None]
  - Scar [None]
  - Pain [None]
  - Inadequate analgesia [None]
  - Device connection issue [None]
